FAERS Safety Report 10027638 (Version 1)
Quarter: 2014Q1

REPORT INFORMATION
  Report Type: Spontaneous
  Country: DE (occurrence: DE)
  Receive Date: 20140321
  Receipt Date: 20140321
  Transmission Date: 20141002
  Serious: Yes (Other)
  Sender: FDA-Public Use
  Company Number: DE-ROCHE-1367428

PATIENT
  Sex: Male

DRUGS (1)
  1. ERIVEDGE [Suspect]
     Indication: BASAL CELL CARCINOMA
     Dosage: TREATED FOR APPROXIMATELY 3-4 MONTHS
     Route: 065

REACTIONS (3)
  - Squamous cell carcinoma [Unknown]
  - Alopecia [Unknown]
  - Ageusia [Unknown]
